FAERS Safety Report 23389090 (Version 2)
Quarter: 2024Q1

REPORT INFORMATION
  Report Type: Spontaneous
  Country: US (occurrence: US)
  Receive Date: 20240110
  Receipt Date: 20240115
  Transmission Date: 20240409
  Serious: No
  Sender: FDA-Public Use
  Company Number: US-PFIZER INC-202400004533

PATIENT
  Age: 73 Year
  Sex: Female
  Weight: 86.18 kg

DRUGS (3)
  1. IBRANCE [Suspect]
     Active Substance: PALBOCICLIB
     Indication: Breast cancer female
     Dosage: 100 MG DAILY FOR THREE WEEKS AND THEN OFF FOR 1 WEEK
     Dates: start: 2022
  2. IBRANCE [Suspect]
     Active Substance: PALBOCICLIB
     Indication: Metastases to bone
  3. FEMARA [Concomitant]
     Active Substance: LETROZOLE
     Indication: Blood oestrogen increased
     Dosage: 2.5 MG, DAILY

REACTIONS (4)
  - Neoplasm progression [Unknown]
  - Red blood cell count decreased [Unknown]
  - White blood cell count decreased [Unknown]
  - Platelet count decreased [Unknown]
